FAERS Safety Report 14886553 (Version 2)
Quarter: 2018Q2

REPORT INFORMATION
  Report Type: Spontaneous
  Country: CH (occurrence: CH)
  Receive Date: 20180512
  Receipt Date: 20180618
  Transmission Date: 20180711
  Serious: Yes (Other)
  Sender: FDA-Public Use
  Company Number: PHHY2018CH002774

PATIENT
  Sex: Male

DRUGS (2)
  1. COSENTYX [Suspect]
     Active Substance: SECUKINUMAB
     Indication: PSORIASIS
     Dosage: 300 MG, QMO
     Route: 065
  2. FOLIC ACID. [Concomitant]
     Active Substance: FOLIC ACID
     Indication: PRODUCT USED FOR UNKNOWN INDICATION
     Dosage: 5 MG, QD
     Route: 065
     Dates: start: 20180529

REACTIONS (25)
  - Blood smear test abnormal [Unknown]
  - Parietal cell antibody positive [Unknown]
  - Hypergammaglobulinaemia benign monoclonal [Unknown]
  - Dermatitis exfoliative generalised [Recovering/Resolving]
  - Iron deficiency anaemia [Unknown]
  - Red blood cell count decreased [Unknown]
  - Pernicious anaemia [Unknown]
  - Mean cell volume abnormal [Unknown]
  - Hypovitaminosis [Unknown]
  - Bone pain [Unknown]
  - Haptoglobin decreased [Unknown]
  - Reticulocyte count increased [Unknown]
  - Blood glucose increased [Unknown]
  - Anaemia macrocytic [Unknown]
  - Transferrin saturation decreased [Unknown]
  - Skin exfoliation [Recovering/Resolving]
  - Haematocrit decreased [Unknown]
  - Blood immunoglobulin A increased [Unknown]
  - Blood immunoglobulin G decreased [Unknown]
  - Blood iron decreased [Unknown]
  - Serum ferritin decreased [Unknown]
  - Hypercalcaemia [Unknown]
  - Pruritus generalised [Recovering/Resolving]
  - Renal failure [Unknown]
  - Vitamin B12 decreased [Unknown]

NARRATIVE: CASE EVENT DATE: 20110111
